FAERS Safety Report 4307036-X (Version None)
Quarter: 2004Q1

REPORT INFORMATION
  Report Type: 
  Country: None (occurrence: None)
  Receive Date: 20040227
  Receipt Date: 20040217
  Transmission Date: 20041129
  Serious: Yes (Death, Life-Threatening, Hospitalization)
  Sender: FDA-Public Use
  Company Number: DE-ROCHE-359300

PATIENT
  Age: 62 Year
  Sex: Female
  Weight: 69.9 kg

DRUGS (6)
  1. CAPECITABINE [Suspect]
     Indication: BREAST CANCER METASTATIC
     Dosage: DOSE PROVIDED AS 75% OF INITIAL DOSE.
     Route: 065
     Dates: start: 20031218, end: 20031227
  2. CAPECITABINE [Suspect]
     Dosage: DOSE PROVIDED AS 2500MG/M2.
     Route: 065
     Dates: start: 20031127, end: 20031205
  3. DOCETAXEL [Suspect]
     Indication: BREAST CANCER METASTATIC
     Dosage: DOSE PROVIDED AS 75% OF INITIAL DOSE.
     Route: 065
     Dates: start: 20031218
  4. DOCETAXEL [Suspect]
     Dosage: DOSE PROVIDED AS 75MG/M2
     Route: 065
     Dates: start: 20031127
  5. ZOFRAN [Concomitant]
     Indication: NAUSEA
     Dates: start: 20031218, end: 20031227
  6. METOCLOPRAMIDE [Concomitant]
     Dates: end: 20031227

REACTIONS (10)
  - CIRCULATORY COLLAPSE [None]
  - DEHYDRATION [None]
  - DIARRHOEA [None]
  - ENTEROCOLITIS [None]
  - ILEUS PARALYTIC [None]
  - NEUTROPENIA [None]
  - REFUSAL OF TREATMENT BY PATIENT [None]
  - RHABDOMYOLYSIS [None]
  - STOMATITIS [None]
  - VOMITING [None]
